FAERS Safety Report 5739890-9 (Version None)
Quarter: 2008Q2

REPORT INFORMATION
  Report Type: 
  Country: None (occurrence: None)
  Receive Date: 20080516
  Receipt Date: 20080507
  Transmission Date: 20081010
  Serious: Yes (Other)
  Sender: FDA-Public Use
  Company Number: GR-JNJFOC-20080501090

PATIENT
  Age: 39 Year
  Sex: Male

DRUGS (3)
  1. INVEGA [Suspect]
     Indication: SCHIZOPHRENIA
     Route: 048
     Dates: start: 20080502
  2. LORAZEPAM [Concomitant]
     Route: 048
  3. NOZINAN [Concomitant]
     Route: 048

REACTIONS (1)
  - DYSARTHRIA [None]
